FAERS Safety Report 12807196 (Version 1)
Quarter: 2016Q4

REPORT INFORMATION
  Report Type: Report from Study
  Country: US (occurrence: US)
  Receive Date: 20161004
  Receipt Date: 20161004
  Transmission Date: 20170207
  Serious: Yes (Other)
  Sender: FDA-Public Use
  Company Number: US-PFIZER INC-2016457432

PATIENT
  Age: 49 Year
  Sex: Female

DRUGS (4)
  1. PROVERA [Suspect]
     Active Substance: MEDROXYPROGESTERONE ACETATE
     Dosage: UNK
  2. HUMIRA [Suspect]
     Active Substance: ADALIMUMAB
     Dosage: 40 MG/0.8 ML, 1 IN 10 DAYS
     Route: 058
  3. HUMIRA [Suspect]
     Active Substance: ADALIMUMAB
     Indication: PSORIATIC ARTHROPATHY
     Dosage: 40 MG/0.8 ML
     Route: 058
     Dates: start: 201403
  4. HUMIRA [Suspect]
     Active Substance: ADALIMUMAB
     Dosage: 40 MG/0.8 ML, 1 IN 7 DAYS
     Route: 058

REACTIONS (7)
  - Benign vaginal neoplasm [Unknown]
  - Pruritus [Unknown]
  - Vaginal haemorrhage [Recovered/Resolved]
  - Haemorrhage [Recovered/Resolved]
  - Drug effect incomplete [Recovered/Resolved]
  - Inappropriate schedule of drug administration [Unknown]
  - Psoriatic arthropathy [Unknown]

NARRATIVE: CASE EVENT DATE: 201602
